FAERS Safety Report 11445299 (Version 1)
Quarter: 2015Q3

REPORT INFORMATION
  Report Type: Spontaneous
  Country: US (occurrence: None)
  Receive Date: 20150901
  Receipt Date: 20150901
  Transmission Date: 20151125
  Serious: No
  Sender: FDA-Public Use
  Company Number: None

PATIENT
  Age: 55 Year
  Sex: Female
  Weight: 63.5 kg

DRUGS (7)
  1. DOTAREM [Suspect]
     Active Substance: GADOTERATE MEGLUMINE
     Indication: SCAN WITH CONTRAST
     Dosage: DURING TEST?INTO A VEIN
     Route: 042
     Dates: start: 20150828, end: 20150828
  2. MULTIVITAMIN [Concomitant]
     Active Substance: VITAMINS
  3. COQ10 [Concomitant]
     Active Substance: UBIDECARENONE
  4. CALCIUM WITH D [Concomitant]
     Active Substance: CALCIUM\VITAMIN D
  5. FISH OIL [Concomitant]
     Active Substance: FISH OIL
  6. ATORVASTATIN [Concomitant]
     Active Substance: ATORVASTATIN
  7. NEXIUM [Concomitant]
     Active Substance: ESOMEPRAZOLE MAGNESIUM

REACTIONS (10)
  - Hyperhidrosis [None]
  - Throat tightness [None]
  - Eye irritation [None]
  - Ocular hyperaemia [None]
  - Photophobia [None]
  - Heart rate increased [None]
  - Lacrimation increased [None]
  - Blood pressure increased [None]
  - Contrast media reaction [None]
  - Eye swelling [None]

NARRATIVE: CASE EVENT DATE: 20150828
